FAERS Safety Report 9294206 (Version 1)
Quarter: 2013Q2

REPORT INFORMATION
  Report Type: Spontaneous
  Country: US (occurrence: US)
  Receive Date: 20130516
  Receipt Date: 20130516
  Transmission Date: 20140414
  Serious: No
  Sender: FDA-Public Use
  Company Number: US-PFIZER INC-2013148761

PATIENT
  Age: 89 Year
  Sex: Female

DRUGS (1)
  1. CELEBREX [Suspect]
     Dosage: UNK
     Dates: start: 201305, end: 201305

REACTIONS (1)
  - Abdominal discomfort [Recovered/Resolved]
